FAERS Safety Report 5792253-2 (Version None)
Quarter: 2008Q2

REPORT INFORMATION
  Report Type: 
  Country: None (occurrence: None)
  Receive Date: 20080626
  Receipt Date: 20080404
  Transmission Date: 20081010
  Serious: No
  Sender: FDA-Public Use
  Company Number: US-ASTRAZENECA-2008UW06812

PATIENT
  Sex: Male

DRUGS (3)
  1. PULMICORT FLEXHALER [Suspect]
     Indication: ASTHMA
     Dosage: 180 UG
     Route: 055
     Dates: start: 20080301
  2. SEREVENT [Concomitant]
  3. LIPITOR [Concomitant]

REACTIONS (2)
  - DIZZINESS [None]
  - NAUSEA [None]
